FAERS Safety Report 25129202 (Version 1)
Quarter: 2025Q1

REPORT INFORMATION
  Report Type: Spontaneous
  Country: TW (occurrence: TW)
  Receive Date: 20250327
  Receipt Date: 20250327
  Transmission Date: 20250409
  Serious: Yes (Other)
  Sender: REGENERON
  Company Number: TW-BAYER-2025A035127

PATIENT
  Age: 69 Year
  Sex: Male

DRUGS (7)
  1. EYLEA [Suspect]
     Active Substance: AFLIBERCEPT
     Indication: Neovascular age-related macular degeneration
     Route: 031
     Dates: start: 201607, end: 201805
  2. EYLEA [Suspect]
     Active Substance: AFLIBERCEPT
     Route: 031
     Dates: start: 20220624, end: 20220624
  3. EYLEA [Suspect]
     Active Substance: AFLIBERCEPT
     Route: 031
     Dates: start: 20220728, end: 20220728
  4. EYLEA [Suspect]
     Active Substance: AFLIBERCEPT
     Route: 031
     Dates: start: 20220825, end: 20220825
  5. EYLEA [Suspect]
     Active Substance: AFLIBERCEPT
     Route: 031
     Dates: start: 20231219, end: 20231219
  6. EYLEA [Suspect]
     Active Substance: AFLIBERCEPT
     Route: 031
     Dates: start: 20240116, end: 20240116
  7. EYLEA [Suspect]
     Active Substance: AFLIBERCEPT
     Route: 031
     Dates: start: 20240215, end: 20240215

REACTIONS (3)
  - Blindness [Recovering/Resolving]
  - Inappropriate schedule of product administration [Unknown]
  - Incorrect product administration duration [Unknown]

NARRATIVE: CASE EVENT DATE: 20220101
